FAERS Safety Report 7940421-3 (Version None)
Quarter: 2011Q4

REPORT INFORMATION
  Report Type: 
  Country: None (occurrence: None)
  Receive Date: 20111127
  Receipt Date: 20111118
  Transmission Date: 20120403
  Serious: Yes (Hospitalization, Other)
  Sender: FDA-Public Use
  Company Number: NO-AMGEN-NORSP2011052398

PATIENT
  Age: 44 Year
  Sex: Male

DRUGS (15)
  1. SOLU-MEDROL [Concomitant]
     Dosage: 100 MG, UNK
     Route: 042
     Dates: start: 20100923
  2. CELESTONE SOLUSPAN [Concomitant]
     Indication: ARTHRITIS
     Dosage: 2 ML, UNK
     Route: 030
  3. METHOTREXATE SODIUM [Suspect]
     Dosage: 15 MG, QWK
  4. FOLSYRE NAF [Concomitant]
     Dosage: 75 MG, WEEKLY
  5. PANTOPRAZOLE [Concomitant]
     Dosage: 20 MG, QD
  6. ENBREL [Suspect]
     Indication: RHEUMATOID ARTHRITIS
     Dosage: 25 MG X 2
     Dates: start: 20090901, end: 20100612
  7. ENBREL [Suspect]
     Indication: PSORIASIS
  8. HUMIRA [Suspect]
     Indication: RHEUMATOID ARTHRITIS
     Dosage: 40MG/0.8ML, IN COMBINATION WITH IMUREL
     Dates: start: 20090101, end: 20090801
  9. ACETAMINOPHEN [Concomitant]
     Dosage: 1G, UP TO 4 TIMES DAILY
     Route: 048
     Dates: start: 20100923
  10. CETIRIZINE HCL [Concomitant]
     Dosage: 10 MG, UNK
     Route: 048
     Dates: start: 20100923
  11. IBUPROFEN [Concomitant]
     Dosage: 400 MG UP TO 3 TIMES DAILY
  12. FOLSYRE NAF [Concomitant]
     Dosage: 1 MG, 1X/DAY
  13. CALCIGRAN FORTE [Concomitant]
     Dosage: 1000MG, EVENING
  14. IMUREL                             /00001501/ [Concomitant]
  15. PREDNISOLONE [Concomitant]
     Dosage: UNK

REACTIONS (13)
  - NECK PAIN [None]
  - MYASTHENIA GRAVIS [None]
  - ARTHRITIS [None]
  - PYREXIA [None]
  - VOMITING [None]
  - ARTHRALGIA [None]
  - NAUSEA [None]
  - ACTIVITIES OF DAILY LIVING IMPAIRED [None]
  - BLEPHAROSPASM [None]
  - RECTAL HAEMORRHAGE [None]
  - PAIN IN JAW [None]
  - PAIN IN EXTREMITY [None]
  - TRISMUS [None]
